FAERS Safety Report 17716212 (Version 1)
Quarter: 2020Q2

REPORT INFORMATION
  Report Type: Spontaneous
  Country: US (occurrence: US)
  Receive Date: 20200428
  Receipt Date: 20200428
  Transmission Date: 20200714
  Serious: No
  Sender: FDA-Public Use
  Company Number: US-SENTYNL THERAPEUTICS, INC.  -2083208

PATIENT
  Age: 72 Year
  Sex: Female

DRUGS (6)
  1. LEVOTHYROXINE. [Concomitant]
     Active Substance: LEVOTHYROXINE
  2. PANTOPRAZOLE SODIUM. [Concomitant]
     Active Substance: PANTOPRAZOLE SODIUM
  3. LEVORPHANOL TARTRATE. [Suspect]
     Active Substance: LEVORPHANOL TARTRATE
     Indication: POST LAMINECTOMY SYNDROME
     Route: 048
     Dates: start: 20170413
  4. DIAZEPAM. [Concomitant]
     Active Substance: DIAZEPAM
  5. BACLOFEN. [Concomitant]
     Active Substance: BACLOFEN
  6. OXYBUTYNIN CHLORIDE. [Concomitant]
     Active Substance: OXYBUTYNIN CHLORIDE

REACTIONS (4)
  - Fall [Unknown]
  - Concussion [Unknown]
  - Dizziness [Unknown]
  - Balance disorder [Unknown]
